FAERS Safety Report 26185055 (Version 1)
Quarter: 2025Q4

REPORT INFORMATION
  Report Type: Spontaneous
  Country: EU (occurrence: EU)
  Receive Date: 20251222
  Receipt Date: 20251222
  Transmission Date: 20260118
  Serious: Yes (Hospitalization)
  Sender: TEVA
  Company Number: None

PATIENT
  Age: 90 Year
  Sex: Male

DRUGS (3)
  1. BISOPROLOL [Interacting]
     Active Substance: BISOPROLOL
     Indication: Hypertension
     Dosage: LC,BISOPROLOL (FUMARATE)
     Route: 048
     Dates: end: 20250118
  2. XENAZINE [Interacting]
     Active Substance: TETRABENAZINE
     Indication: Hypertension
     Dosage: LC, SCORED TABLET
     Route: 048
  3. TAMSULOSIN [Interacting]
     Active Substance: TAMSULOSIN
     Indication: Hypertension
     Dosage: LC, TAMSULOSIN HYDROCHLORIDE
     Route: 048

REACTIONS (2)
  - Malaise [Recovered/Resolved]
  - Hypotension [Recovered/Resolved]

NARRATIVE: CASE EVENT DATE: 20250118
